FAERS Safety Report 13343493 (Version 2)
Quarter: 2018Q3

REPORT INFORMATION
  Report Type: Spontaneous
  Country: GB (occurrence: GB)
  Receive Date: 20170316
  Receipt Date: 20180724
  Transmission Date: 20181010
  Serious: Yes (Hospitalization)
  Sender: FDA-Public Use
  Company Number: GB-BAYER-2017-046265

PATIENT
  Age: 66 Year
  Sex: Male

DRUGS (3)
  1. ACETYLSALICYLIC ACID({=100 MG) [Suspect]
     Active Substance: ASPIRIN
     Dosage: 75 MG, QD
  2. TICAGRELOR. [Interacting]
     Active Substance: TICAGRELOR
     Indication: THROMBOSIS PROPHYLAXIS
     Dosage: 90 MG, BID
  3. EPTIFIBATIDE. [Interacting]
     Active Substance: EPTIFIBATIDE
     Dosage: UNK

REACTIONS (4)
  - Subarachnoid haemorrhage [None]
  - Labelled drug-drug interaction medication error [None]
  - Drug administration error [None]
  - Intracranial aneurysm [None]
